FAERS Safety Report 9847489 (Version 2)
Quarter: 2018Q1

REPORT INFORMATION
  Report Type: Spontaneous
  Country: US (occurrence: US)
  Receive Date: 20140127
  Receipt Date: 20180118
  Transmission Date: 20180509
  Serious: No
  Sender: FDA-Public Use
  Company Number: US-009507513-1401USA011000

PATIENT
  Age: 78 Year
  Sex: Female

DRUGS (1)
  1. ASMANEX [Suspect]
     Active Substance: MOMETASONE FUROATE
     Indication: BRONCHOSPASM
     Dosage: UNK, AS NEEDED
     Route: 055

REACTIONS (4)
  - Oropharyngeal pain [Unknown]
  - Product quality issue [Unknown]
  - Off label use [Unknown]
  - Dysphonia [Unknown]

NARRATIVE: CASE EVENT DATE: 20131226
